FAERS Safety Report 10230897 (Version 1)
Quarter: 2014Q2

REPORT INFORMATION
  Report Type: Report from Study
  Country: US (occurrence: US)
  Receive Date: 20140611
  Receipt Date: 20140611
  Transmission Date: 20141212
  Serious: Yes (Other)
  Sender: FDA-Public Use
  Company Number: US-SA-2014SA072918

PATIENT
  Sex: Male

DRUGS (5)
  1. LANTUS SOLOSTAR [Suspect]
     Indication: PRODUCT USED FOR UNKNOWN INDICATION
     Dosage: DOSE:65 UNIT(S)
     Route: 048
     Dates: start: 201304
  2. LANTUS SOLOSTAR [Suspect]
     Indication: PRODUCT USED FOR UNKNOWN INDICATION
     Dosage: DOSE:75 UNIT(S)
     Route: 048
  3. LANTUS SOLOSTAR [Suspect]
     Indication: PRODUCT USED FOR UNKNOWN INDICATION
     Dosage: DOSE:100 UNIT(S)
     Route: 048
     Dates: start: 201402
  4. SOLOSTAR [Concomitant]
     Dates: start: 201304
  5. NOVOLOG [Concomitant]

REACTIONS (1)
  - Arterial occlusive disease [Unknown]
